FAERS Safety Report 5820234-9 (Version None)
Quarter: 2008Q3

REPORT INFORMATION
  Report Type: 
  Country: None (occurrence: None)
  Receive Date: 20080724
  Receipt Date: 20080713
  Transmission Date: 20090109
  Serious: Yes (Disabling, Other)
  Sender: FDA-Public Use
  Company Number: HQWYE504104APR07

PATIENT
  Sex: Male
  Weight: 72.64 kg

DRUGS (7)
  1. EFFEXOR XR [Suspect]
     Indication: DEPRESSION
     Dosage: UNKNOWN
     Route: 048
     Dates: start: 20020101
  2. EFFEXOR XR [Suspect]
     Indication: ANXIETY
     Route: 048
     Dates: start: 20030101
  3. EFFEXOR XR [Suspect]
     Route: 048
     Dates: start: 20040101, end: 20050101
  4. EFFEXOR XR [Suspect]
     Dosage: ^1/2 CAPSULE^
     Route: 048
     Dates: start: 20050101, end: 20050101
  5. EFFEXOR XR [Suspect]
     Dosage: ^1/4 CAPSULE^
     Route: 048
     Dates: start: 20050101, end: 20050101
  6. EFFEXOR XR [Suspect]
     Route: 048
     Dates: start: 20050101, end: 20050101
  7. EFFEXOR XR [Suspect]
     Dosage: ^USED 3 STARTER PACKS IN REVERSE OVER A PERIOD OF 1 1/2 MONTHS^
     Route: 048
     Dates: start: 20050101, end: 20050101

REACTIONS (12)
  - BRAIN INJURY [None]
  - CONVULSION [None]
  - DEPRESSION [None]
  - DRUG WITHDRAWAL SYNDROME [None]
  - HEADACHE [None]
  - INSOMNIA [None]
  - PANIC ATTACK [None]
  - PARAESTHESIA [None]
  - PSYCHIATRIC SYMPTOM [None]
  - STRESS [None]
  - SUICIDAL IDEATION [None]
  - TINNITUS [None]
